FAERS Safety Report 8087899-5 (Version None)
Quarter: 2012Q1

REPORT INFORMATION
  Report Type: 
  Country: None (occurrence: None)
  Receive Date: 20120128
  Receipt Date: 20110412
  Transmission Date: 20120608
  Serious: No
  Sender: FDA-Public Use
  Company Number: US-ABBOTT-11P-163-0718100-00

PATIENT
  Sex: Female

DRUGS (6)
  1. VALIUM [Concomitant]
     Indication: PAIN
  2. DURAGESIC-100 [Concomitant]
     Indication: PAIN
  3. HUMIRA [Suspect]
     Indication: RHEUMATOID ARTHRITIS
     Dates: start: 20100901
  4. ZOCOR [Concomitant]
     Indication: BLOOD CHOLESTEROL INCREASED
  5. OXYCODONE HCL [Concomitant]
     Indication: PAIN
  6. METHOTREXATE [Concomitant]
     Indication: RHEUMATOID ARTHRITIS

REACTIONS (1)
  - RASH [None]
